FAERS Safety Report 6414402-5 (Version None)
Quarter: 2009Q4

REPORT INFORMATION
  Report Type: 
  Country: None (occurrence: None)
  Receive Date: 20091026
  Receipt Date: 20091021
  Transmission Date: 20100525
  Serious: Yes (Other)
  Sender: FDA-Public Use
  Company Number: US-BAYER-200915799BCC

PATIENT
  Age: 86 Year
  Sex: Female
  Weight: 52 kg

DRUGS (1)
  1. EXTRA STRENGTH BAYER BACK + BODY ASPIRIN [Suspect]
     Indication: ARTHRITIS
     Dosage: UNIT DOSE: 1 DF
     Route: 048

REACTIONS (2)
  - AMNESIA [None]
  - TINNITUS [None]
